FAERS Safety Report 8780097 (Version 1)
Quarter: 2012Q4

REPORT INFORMATION
  Report Type: 
  Country: US (occurrence: US)
  Receive Date: 20120912
  Receipt Date: 20120912
  Transmission Date: 20130627
  Serious: No
  Sender: FDA-Public Use
  Company Number: US-VERTEX PHARMACEUTICAL INC.-AE-2012-005069

PATIENT
  Age: 45 Year
  Sex: Female
  Weight: 73.64 kg

DRUGS (6)
  1. INCIVEK [Suspect]
     Indication: HEPATITIS C
     Route: 048
     Dates: start: 20120227
  2. PEGASYS [Concomitant]
     Indication: HEPATITIS C
     Dates: start: 20120227
  3. RIBAVIRIN [Concomitant]
     Indication: HEPATITIS C
     Dates: start: 20120227
  4. DICLOFENAC [Concomitant]
  5. ESTROGEN [Concomitant]
  6. CYTOLOPRAM [Concomitant]

REACTIONS (3)
  - Rash papular [Not Recovered/Not Resolved]
  - Pruritus [Not Recovered/Not Resolved]
  - Anorectal discomfort [Not Recovered/Not Resolved]
